FAERS Safety Report 26020524 (Version 1)
Quarter: 2025Q4

REPORT INFORMATION
  Report Type: Spontaneous
  Country: JP (occurrence: JP)
  Receive Date: 20251110
  Receipt Date: 20251110
  Transmission Date: 20260118
  Serious: Yes (Death, Life-Threatening, Other)
  Sender: AMGEN
  Company Number: JP-AMGEN-JPNSP2025218193

PATIENT

DRUGS (2)
  1. BEVACIZUMAB [Suspect]
     Active Substance: BEVACIZUMAB
     Indication: Gastrointestinal neuroendocrine carcinoma
     Dosage: UNK
     Route: 065
  2. BEVACIZUMAB [Suspect]
     Active Substance: BEVACIZUMAB
     Indication: Mixed adenoneuroendocrine carcinoma

REACTIONS (14)
  - Rectal perforation [Fatal]
  - Neutropenia [Unknown]
  - Febrile neutropenia [Unknown]
  - Adverse event [Unknown]
  - Gastrointestinal neuroendocrine carcinoma [Unknown]
  - Mixed adenoneuroendocrine carcinoma [Unknown]
  - Leukopenia [Unknown]
  - Anaemia [Unknown]
  - Decreased appetite [Unknown]
  - Pyrexia [Unknown]
  - Infection [Unknown]
  - Anal fistula [Unknown]
  - Drug effective for unapproved indication [Unknown]
  - Off label use [Unknown]
